FAERS Safety Report 8461771-0 (Version None)
Quarter: 2012Q2

REPORT INFORMATION
  Report Type: 
  Country: None (occurrence: None)
  Receive Date: 20120619
  Receipt Date: 20120619
  Transmission Date: 20120825
  Serious: Yes (Disabling, Other)
  Sender: FDA-Public Use
  Company Number: None

PATIENT
  Age: 53 Year
  Sex: Female
  Weight: 68.0396 kg

DRUGS (3)
  1. GEODON [Concomitant]
  2. MIRTAZAPINE [Suspect]
     Indication: DEPRESSION
     Dosage: 135MG 1X/DAY PO
     Route: 048
     Dates: start: 20000222, end: 20110904
  3. MENDA [Concomitant]

REACTIONS (7)
  - ANXIETY [None]
  - DIZZINESS [None]
  - MENTAL DISORDER [None]
  - IMPAIRED WORK ABILITY [None]
  - NAUSEA [None]
  - HEADACHE [None]
  - QUALITY OF LIFE DECREASED [None]
